FAERS Safety Report 7705921-X (Version None)
Quarter: 2011Q3

REPORT INFORMATION
  Report Type: 
  Country: None (occurrence: None)
  Receive Date: 20110824
  Receipt Date: 20110822
  Transmission Date: 20111222
  Serious: Yes (Other)
  Sender: FDA-Public Use
  Company Number: DK-PFIZER INC-2011193298

PATIENT
  Age: 60 Year
  Sex: Female

DRUGS (2)
  1. EFFEXOR [Suspect]
     Indication: DEPRESSION
     Dosage: 150 MG DAILY
     Dates: start: 20080101, end: 20110201
  2. EFFEXOR [Suspect]
     Dosage: 375 MG DAILY
     Dates: start: 20110201

REACTIONS (1)
  - ULCER [None]
